FAERS Safety Report 19420723 (Version 5)
Quarter: 2021Q2

REPORT INFORMATION
  Report Type: Report from Study
  Country: None (occurrence: US)
  Receive Date: 20210616
  Receipt Date: 20210625
  Transmission Date: 20210717
  Serious: Yes (Other)
  Sender: FDA-Public Use
  Company Number: US-ABBVIE-21K-163-3949328-00

PATIENT
  Age: 62 Year
  Sex: Female
  Weight: 108.96 kg

DRUGS (12)
  1. HUMIRA [Suspect]
     Active Substance: ADALIMUMAB
     Indication: HIDRADENITIS
     Dosage: CITRATE FREE
     Route: 058
     Dates: start: 20200612, end: 202101
  2. MAGNESIUM [Concomitant]
     Active Substance: MAGNESIUM
     Indication: CONGENITAL CYSTIC KIDNEY DISEASE
  3. PROZAC [Concomitant]
     Active Substance: FLUOXETINE HYDROCHLORIDE
     Indication: DEPRESSION
  4. COVID?19 VACCINE [Concomitant]
     Dosage: PFIZER
     Route: 030
     Dates: start: 20210405, end: 20210405
  5. FAMOTIDINE. [Concomitant]
     Active Substance: FAMOTIDINE
     Indication: GASTROOESOPHAGEAL REFLUX DISEASE
  6. LIPITOR [Concomitant]
     Active Substance: ATORVASTATIN CALCIUM
     Indication: BLOOD CHOLESTEROL INCREASED
  7. CALCIUM [Concomitant]
     Active Substance: CALCIUM
     Indication: CONGENITAL CYSTIC KIDNEY DISEASE
  8. VITAMIN D [Concomitant]
     Active Substance: VITAMIN D NOS
     Indication: CONGENITAL CYSTIC KIDNEY DISEASE
  9. COVID?19 VACCINE [Concomitant]
     Indication: COVID-19 IMMUNISATION
     Dosage: PFIZER
     Route: 030
     Dates: start: 20210315, end: 20210315
  10. HUMIRA [Suspect]
     Active Substance: ADALIMUMAB
     Dosage: CF
     Route: 058
     Dates: start: 202102
  11. POTASSIUM CITRATE. [Concomitant]
     Active Substance: POTASSIUM CITRATE
     Indication: CONGENITAL CYSTIC KIDNEY DISEASE
  12. ASPIRIN. [Concomitant]
     Active Substance: ASPIRIN
     Indication: PRODUCT USED FOR UNKNOWN INDICATION
     Dosage: LOW DOSE

REACTIONS (8)
  - Muscle spasms [Recovered/Resolved]
  - Pyrexia [Recovered/Resolved]
  - Sinus antrostomy [Unknown]
  - Nephrolithiasis [Recovered/Resolved]
  - Lacrimation increased [Unknown]
  - Eye infection [Recovering/Resolving]
  - Sinus disorder [Unknown]
  - Sinonasal papilloma [Unknown]

NARRATIVE: CASE EVENT DATE: 2021
